FAERS Safety Report 8598967-3 (Version None)
Quarter: 2012Q3

REPORT INFORMATION
  Report Type: 
  Country: None (occurrence: None)
  Receive Date: 20120816
  Receipt Date: 19940126
  Transmission Date: 20120928
  Serious: Yes (Other)
  Sender: FDA-Public Use
  Company Number: US-ROCHE-1101205

PATIENT
  Age: 34 Year
  Sex: Male

DRUGS (4)
  1. LIDOCAINE [Concomitant]
     Route: 042
  2. HEPARIN [Concomitant]
     Route: 040
  3. LIDOCAINE [Concomitant]
     Route: 042
  4. ACTIVASE [Suspect]
     Indication: ANGINA UNSTABLE
     Route: 042

REACTIONS (1)
  - VENTRICULAR EXTRASYSTOLES [None]
